FAERS Safety Report 8577093-3 (Version None)
Quarter: 2012Q3

REPORT INFORMATION
  Report Type: 
  Country: None (occurrence: None)
  Receive Date: 20120807
  Receipt Date: 20120731
  Transmission Date: 20120928
  Serious: Yes (Hospitalization, Other)
  Sender: FDA-Public Use
  Company Number: AU-B.I. PHARMACEUTICALS,INC./RIDGEFIELD-2012-AU-01107AU

PATIENT
  Sex: Male
  Weight: 59.8 kg

DRUGS (6)
  1. BICOR [Concomitant]
     Dosage: 10 MG
  2. AMIODARONE HCL [Concomitant]
     Dosage: 400 MG
  3. ATACAND [Concomitant]
     Dosage: 16 MG
  4. PRADAXA [Suspect]
     Indication: ATRIAL FIBRILLATION
     Dosage: 220 MG
     Dates: start: 20110825, end: 20120525
  5. FUROSEMIDE [Concomitant]
     Dosage: 40 MG
  6. LIPITOR [Concomitant]

REACTIONS (6)
  - LOSS OF CONSCIOUSNESS [None]
  - ANAEMIA [None]
  - SMALL INTESTINE CARCINOMA [None]
  - GASTROINTESTINAL HAEMORRHAGE [None]
  - PALLOR [None]
  - RENAL IMPAIRMENT [None]
